FAERS Safety Report 5026229-X (Version None)
Quarter: 2006Q2

REPORT INFORMATION
  Report Type: 
  Country: None (occurrence: None)
  Receive Date: 20060608
  Receipt Date: 20060529
  Transmission Date: 20061013
  Serious: Yes (Hospitalization)
  Sender: FDA-Public Use
  Company Number: HQWYE324012MAY06

PATIENT
  Age: 45 Year
  Sex: Male

DRUGS (8)
  1. RAPAMUNE [Suspect]
     Indication: PROPHYLAXIS AGAINST TRANSPLANT REJECTION
     Dosage: 2 MG 1X PER 1 DAY ORAL
     Route: 048
     Dates: start: 20040226
  2. PREDNISONE TAB [Concomitant]
  3. MYCOPHENOLATE MOFETIL [Concomitant]
  4. BACTRIM [Concomitant]
  5. ATENOLOL [Concomitant]
  6. CLONIDINE [Concomitant]
  7. SIMVASTATIN [Concomitant]
  8. ENALAPRIL MALEATE [Concomitant]

REACTIONS (1)
  - SKIN ULCER [None]
